FAERS Safety Report 6552933-8 (Version None)
Quarter: 2010Q1

REPORT INFORMATION
  Report Type: 
  Country: None (occurrence: None)
  Receive Date: 20100122
  Receipt Date: 20100107
  Transmission Date: 20100710
  Serious: Yes (Other)
  Sender: FDA-Public Use
  Company Number: CAP10000007

PATIENT
  Age: 66 Year
  Sex: Female
  Weight: 67.1 kg

DRUGS (5)
  1. ACTONEL [Suspect]
     Dosage: 35 MG ONCE WEEKLY, ORAL
     Route: 048
  2. CALCIUM (CALCIUM) [Concomitant]
  3. PANTOLOC /01263201/(PANTOPRAZOLE) [Concomitant]
  4. RABEPRAZOLE SODIUM [Concomitant]
  5. SULFASALAZINE [Concomitant]

REACTIONS (8)
  - BONE PAIN [None]
  - BURNING SENSATION [None]
  - COLITIS [None]
  - FACE OEDEMA [None]
  - MOUTH ULCERATION [None]
  - ORAL PAIN [None]
  - OROPHARYNGEAL PAIN [None]
  - TONGUE DISCOLOURATION [None]
